FAERS Safety Report 7514822-1 (Version None)
Quarter: 2011Q2

REPORT INFORMATION
  Report Type: 
  Country: None (occurrence: None)
  Receive Date: 20110601
  Receipt Date: 20110520
  Transmission Date: 20111010
  Serious: Yes (Hospitalization)
  Sender: FDA-Public Use
  Company Number: AU-JNJFOC-20110510660

PATIENT
  Sex: Male
  Weight: 79.8 kg

DRUGS (8)
  1. PREDNISONE [Suspect]
     Indication: PROSTATE CANCER
     Route: 048
     Dates: start: 20110513, end: 20110520
  2. ZYTIGA [Suspect]
     Indication: PROSTATE CANCER
     Route: 048
     Dates: start: 20110513, end: 20110520
  3. CALCIUM CARBONATE [Concomitant]
     Indication: MINERAL SUPPLEMENTATION
     Route: 065
     Dates: start: 20100101
  4. NEXIUM [Concomitant]
     Indication: GASTROINTESTINAL DISORDER THERAPY
     Route: 065
     Dates: start: 20100928
  5. NEURONTIN [Concomitant]
     Indication: PAIN
     Route: 065
     Dates: start: 20100101
  6. ZYTIGA [Suspect]
     Route: 048
  7. BUPRENORPHINE [Suspect]
     Indication: PAIN
     Route: 062
     Dates: start: 20110517
  8. LUCRIN [Concomitant]
     Indication: HORMONE THERAPY
     Route: 065
     Dates: start: 20071001

REACTIONS (3)
  - DEHYDRATION [None]
  - NAUSEA [None]
  - VOMITING [None]
